FAERS Safety Report 15992642 (Version 1)
Quarter: 2019Q1

REPORT INFORMATION
  Report Type: Spontaneous
  Country: US (occurrence: US)
  Receive Date: 20190221
  Receipt Date: 20190221
  Transmission Date: 20190418
  Serious: No
  Sender: FDA-Public Use
  Company Number: US-AKRON, INC.-2063035

PATIENT
  Age: 81 Year
  Sex: Male

DRUGS (3)
  1. COSOPT PF [Suspect]
     Active Substance: DORZOLAMIDE HYDROCHLORIDE\TIMOLOL MALEATE
     Route: 047
  2. ZIOPTAN [Concomitant]
     Active Substance: TAFLUPROST
     Route: 047
  3. RESTASIS [Concomitant]
     Active Substance: CYCLOSPORINE
     Route: 047

REACTIONS (3)
  - Lacrimation increased [Not Recovered/Not Resolved]
  - Eye pain [Unknown]
  - Eye irritation [Not Recovered/Not Resolved]
